FAERS Safety Report 14418103 (Version 2)
Quarter: 2020Q3

REPORT INFORMATION
  Report Type: Spontaneous
  Country: NL (occurrence: US)
  Receive Date: 20180122
  Receipt Date: 20200721
  Transmission Date: 20201102
  Serious: Yes (Hospitalization, Other)
  Sender: FDA-Public Use
  Company Number: US-LEXICON PHARMACEUTICALS, INC-18-1606-00046

PATIENT
  Age: 78 Year
  Sex: Male

DRUGS (2)
  1. TELOTRISTAT ETHYL [Suspect]
     Active Substance: TELOTRISTAT ETHYL
     Indication: CARCINOID SYNDROME
     Route: 048
     Dates: start: 20170925
  2. AFINITOR [Suspect]
     Active Substance: EVEROLIMUS
     Indication: CARCINOID SYNDROME
     Route: 048

REACTIONS (15)
  - Syncope [Unknown]
  - Cachexia [Unknown]
  - Fatigue [Unknown]
  - Abdominal pain lower [Unknown]
  - Intestinal obstruction [Unknown]
  - Dizziness [Unknown]
  - Flushing [Unknown]
  - Abdominal distension [Unknown]
  - Peripheral swelling [Unknown]
  - Hepatic neoplasm [Unknown]
  - Diarrhoea [Unknown]
  - Breath sounds abnormal [Unknown]
  - Neoplasm progression [Unknown]
  - Constipation [Unknown]
  - Asthenia [Unknown]
